FAERS Safety Report 9241606 (Version 2)
Quarter: 2013Q2

REPORT INFORMATION
  Report Type: Spontaneous
  Country: IN (occurrence: IN)
  Receive Date: 20130419
  Receipt Date: 20130516
  Transmission Date: 20140414
  Serious: Yes (Life-Threatening, Hospitalization, Other)
  Sender: FDA-Public Use
  Company Number: IN-009507513-1304IND008640

PATIENT
  Age: 50 Year
  Sex: Female
  Weight: 81 kg

DRUGS (5)
  1. JANUVIA [Suspect]
     Indication: TYPE 2 DIABETES MELLITUS
     Dosage: 100 MG, QD
     Route: 048
     Dates: start: 20130316, end: 20130319
  2. ATORVASTATIN [Concomitant]
     Dosage: 10 MG, UNK
     Dates: start: 20130316
  3. GLIMEPRID [Concomitant]
     Dosage: 2 MG, UNK
     Dates: start: 200905
  4. METFORMIN [Concomitant]
     Dosage: 500 MG, BID
     Dates: start: 200905
  5. PIOGLITAZONE HYDROCHLORIDE [Concomitant]
     Dosage: 15 MG, BID
     Dates: start: 200905

REACTIONS (4)
  - Toxic epidermal necrolysis [Unknown]
  - Pyrexia [Unknown]
  - Decreased appetite [Unknown]
  - Vomiting [Unknown]
